FAERS Safety Report 5759811-2 (Version None)
Quarter: 2008Q2

REPORT INFORMATION
  Report Type: 
  Country: None (occurrence: None)
  Receive Date: 20080605
  Receipt Date: 20080530
  Transmission Date: 20081010
  Serious: Yes (Hospitalization)
  Sender: FDA-Public Use
  Company Number: FR-ASTRAZENECA-2008CG00843

PATIENT
  Age: 84 Year
  Sex: Female

DRUGS (9)
  1. NOLVADEX [Suspect]
     Indication: BREAST CANCER FEMALE
     Route: 048
     Dates: start: 20080430
  2. AMLOR [Concomitant]
     Indication: HYPERTENSION
  3. DETENSIEL [Concomitant]
     Indication: HYPERTENSION
  4. DOLIPRANE [Concomitant]
  5. TRANSIPEG [Concomitant]
  6. HUMULIN N [Concomitant]
     Indication: TYPE 2 DIABETES MELLITUS
  7. OXYCONTIN [Concomitant]
     Indication: METASTASES TO BONE
  8. OXYNORM [Concomitant]
     Indication: METASTASES TO BONE
  9. ATHYMIL [Concomitant]
     Indication: DEPRESSION

REACTIONS (3)
  - INFLAMMATION [None]
  - SEPSIS [None]
  - TREMOR [None]
